FAERS Safety Report 10664792 (Version 1)
Quarter: 2014Q4

REPORT INFORMATION
  Report Type: Spontaneous
  Country: US (occurrence: None)
  Receive Date: 20141205
  Receipt Date: 20141205
  Transmission Date: 20150529
  Serious: Yes (Other)
  Sender: FDA-Public Use
  Company Number: 163-POMAL-14060746

PATIENT
  Age: 71 Year
  Sex: Male
  Weight: 122.5 kg

DRUGS (27)
  1. LORAZEPAM. [Concomitant]
     Active Substance: LORAZEPAM
  2. FLUTICASONE [Concomitant]
     Active Substance: FLUTICASONE\FLUTICASONE PROPIONATE
  3. ASPIRIN (ACETYLSALICYLIC ACID) [Concomitant]
     Active Substance: ASPIRIN
  4. ADVAIR DISKUS [Concomitant]
     Active Substance: FLUTICASONE PROPIONATE\SALMETEROL XINAFOATE
  5. LIDODERM [Concomitant]
     Active Substance: LIDOCAINE
  6. DEXAMETHASONE. [Concomitant]
     Active Substance: DEXAMETHASONE
  7. METOPROLOL SUCCINATE. [Concomitant]
     Active Substance: METOPROLOL SUCCINATE
  8. ZOMETA [Concomitant]
     Active Substance: ZOLEDRONIC ACID
  9. TIZANIDINE HCL (TIZANIDINE HYDROCHLORIDE) [Concomitant]
  10. SINGULAIR (MONTELUKAST SODIUM) [Concomitant]
  11. TRAMADOL HYDROCHLORIDE. [Concomitant]
     Active Substance: TRAMADOL HYDROCHLORIDE
  12. ALBUTEROL. [Concomitant]
     Active Substance: ALBUTEROL
  13. POMALYST [Suspect]
     Active Substance: POMALIDOMIDE
     Indication: PLASMA CELL MYELOMA
     Route: 048
     Dates: start: 20140509
  14. EXELON [Concomitant]
     Active Substance: RIVASTIGMINE TARTRATE
  15. MAGNESIUM OXIDE. [Concomitant]
     Active Substance: MAGNESIUM OXIDE
  16. COMBIVENT (IPRATROPIUM BROMIDE, SALBUTAMOL SULFATE) [Concomitant]
  17. ACYCLOVIR. [Concomitant]
     Active Substance: ACYCLOVIR
  18. VITAMIN D (VITAMIN D NOS) [Concomitant]
  19. FENTANYL. [Concomitant]
     Active Substance: FENTANYL
  20. OMEPRAZOLE. [Concomitant]
     Active Substance: OMEPRAZOLE
  21. LASIX [Concomitant]
     Active Substance: FUROSEMIDE
  22. FOLIC ACID. [Concomitant]
     Active Substance: FOLIC ACID
  23. CENTRUM [Concomitant]
     Active Substance: VITAMINS
  24. MIRTAZAPINE. [Concomitant]
     Active Substance: MIRTAZAPINE
  25. ONDANSETRON HCL (ONDANSETRON HYDROCHLORIDE) [Concomitant]
     Active Substance: ONDANSETRON HYDROCHLORIDE
  26. TAMSULOSIN HCL (TAMSULOSIN HYDROCHLORIDE) [Concomitant]
  27. VITAMIN B12 [Concomitant]
     Active Substance: CYANOCOBALAMIN

REACTIONS (5)
  - Back pain [None]
  - Atrial fibrillation [None]
  - Diarrhoea [None]
  - Bone lesion [None]
  - Blood immunoglobulin M increased [None]

NARRATIVE: CASE EVENT DATE: 2014
